FAERS Safety Report 9108711 (Version 2)
Quarter: 2013Q2

REPORT INFORMATION
  Report Type: Spontaneous
  Country: US (occurrence: US)
  Receive Date: 20130222
  Receipt Date: 20130409
  Transmission Date: 20140414
  Serious: Yes (Hospitalization)
  Sender: FDA-Public Use
  Company Number: US-BIOGENIDEC-2013BI014961

PATIENT
  Age: 49 Year
  Sex: Female

DRUGS (12)
  1. TYSABRI [Suspect]
     Indication: MULTIPLE SCLEROSIS
     Route: 042
     Dates: start: 20061219, end: 20081210
  2. TYSABRI [Suspect]
     Indication: MULTIPLE SCLEROSIS
     Route: 042
     Dates: start: 20110131
  3. BACLOFEN [Concomitant]
     Indication: MUSCLE SPASTICITY
     Route: 048
  4. AMANTADINE [Concomitant]
     Indication: FATIGUE
     Route: 048
  5. PROVIGIL [Concomitant]
     Indication: FATIGUE
     Route: 048
  6. DITROPAN XL [Concomitant]
     Indication: BLADDER DISORDER
     Route: 048
  7. ZOLOFT [Concomitant]
     Indication: AFFECTIVE DISORDER
     Route: 048
  8. TIZANIDINE [Concomitant]
     Indication: MUSCLE SPASTICITY
     Route: 048
  9. DANTRIUM [Concomitant]
     Indication: MUSCLE SPASTICITY
     Route: 048
  10. BOTOX [Concomitant]
     Indication: MUSCLE SPASTICITY
     Route: 042
  11. VITAMIN D [Concomitant]
     Route: 048
  12. MIRALAX [Concomitant]
     Indication: CONSTIPATION
     Route: 048

REACTIONS (6)
  - Muscle spasticity [Recovered/Resolved]
  - Procedural pain [Unknown]
  - Procedural nausea [Unknown]
  - Constipation [Not Recovered/Not Resolved]
  - Dehydration [Unknown]
  - Multiple sclerosis relapse [Unknown]
